FAERS Safety Report 20507427 (Version 1)
Quarter: 2022Q1

REPORT INFORMATION
  Report Type: Report from Study
  Country: IT (occurrence: IT)
  Receive Date: 20220223
  Receipt Date: 20220223
  Transmission Date: 20220423
  Serious: Yes (Hospitalization)
  Sender: FDA-Public Use
  Company Number: IT-JNJFOC-20220241748

PATIENT

DRUGS (2)
  1. HALOPERIDOL [Interacting]
     Active Substance: HALOPERIDOL
     Indication: Bipolar I disorder
     Dosage: DEFINED DAILY DOSE :8 (0.25)
     Route: 065
  2. QUETIAPINE [Interacting]
     Active Substance: QUETIAPINE
     Indication: Product used for unknown indication
     Route: 065

REACTIONS (2)
  - Tremor [Unknown]
  - Drug interaction [Unknown]
